FAERS Safety Report 16764125 (Version 2)
Quarter: 2019Q4

REPORT INFORMATION
  Report Type: Spontaneous
  Country: JP (occurrence: JP)
  Receive Date: 20190902
  Receipt Date: 20191001
  Transmission Date: 20200122
  Serious: Yes (Death)
  Sender: FDA-Public Use
  Company Number: JP-ACTELION-A-CH2019-192490

PATIENT
  Age: 23 Year
  Sex: Female
  Weight: 41.3 kg

DRUGS (8)
  1. BISOPROLOL FUMARATE. [Concomitant]
     Active Substance: BISOPROLOL FUMARATE
     Indication: ATRIAL SEPTAL DEFECT
     Dosage: 0.625 MG, QD
     Dates: end: 20190816
  2. BAYASPIRIN [Concomitant]
     Active Substance: ASPIRIN
     Dosage: 100 MG, QD
     Dates: end: 20190816
  3. HALFDIGOXIN [Concomitant]
     Active Substance: DIGOXIN
     Indication: ATRIAL SEPTAL DEFECT
     Dosage: 0.125 MG, QD
     Dates: end: 20190816
  4. UPTRAVI [Suspect]
     Active Substance: SELEXIPAG
     Indication: PULMONARY ARTERIAL HYPERTENSION
     Dosage: 0.2 MG, BID
     Route: 048
     Dates: start: 20190516, end: 20190531
  5. VOLIBRIS [Concomitant]
     Active Substance: AMBRISENTAN
     Indication: PULMONARY ARTERIAL HYPERTENSION
     Dosage: 5 MG, QD
     Dates: start: 20160409, end: 20190816
  6. UPTRAVI [Suspect]
     Active Substance: SELEXIPAG
     Dosage: 0.4 UNK
     Route: 048
     Dates: start: 20190601, end: 20190816
  7. ADCIRCA [Concomitant]
     Active Substance: TADALAFIL
     Indication: PULMONARY ARTERIAL HYPERTENSION
     Dosage: 40 MG, QD
     Dates: start: 20160227, end: 20190816
  8. FUROSEMIDE. [Concomitant]
     Active Substance: FUROSEMIDE
     Indication: ATRIAL SEPTAL DEFECT
     Dosage: 20 MG, QD
     Dates: end: 20190816

REACTIONS (3)
  - Pulmonary arterial hypertension [Fatal]
  - Oedema [Recovered/Resolved]
  - Condition aggravated [Fatal]

NARRATIVE: CASE EVENT DATE: 201905
